FAERS Safety Report 8472862-2 (Version None)
Quarter: 2012Q2

REPORT INFORMATION
  Report Type: 
  Country: None (occurrence: None)
  Receive Date: 20120627
  Receipt Date: 20120619
  Transmission Date: 20120825
  Serious: Yes (Other)
  Sender: FDA-Public Use
  Company Number: US-ABBOTT-12P-163-0948416-00

PATIENT
  Sex: Male
  Weight: 74.91 kg

DRUGS (7)
  1. OMEPRAZOLE [Concomitant]
     Indication: ADVERSE EVENT
  2. VITAMIN TAB [Concomitant]
     Indication: VITAMIN SUPPLEMENTATION
  3. FOLIC ACID [Concomitant]
     Indication: VITAMIN SUPPLEMENTATION
  4. WELLBUTRIN [Concomitant]
     Indication: PRODUCT USED FOR UNKNOWN INDICATION
  5. HUMIRA [Suspect]
     Indication: RHEUMATOID ARTHRITIS
     Dates: end: 20120501
  6. OMEPRAZOLE [Concomitant]
     Indication: PROPHYLAXIS
  7. METHOTREXATE [Concomitant]
     Indication: RHEUMATOID ARTHRITIS

REACTIONS (3)
  - VISUAL IMPAIRMENT [None]
  - DIPLOPIA [None]
  - APPENDICITIS [None]
